FAERS Safety Report 5811096-4 (Version None)
Quarter: 2008Q3

REPORT INFORMATION
  Report Type: 
  Country: None (occurrence: None)
  Receive Date: 20080711
  Receipt Date: 20080605
  Transmission Date: 20090109
  Serious: No
  Sender: FDA-Public Use
  Company Number: 2008BM000115

PATIENT
  Age: 11 Year
  Sex: Male
  Weight: 50 kg

DRUGS (2)
  1. KUVAN [Suspect]
     Indication: PHENYLKETONURIA
     Dosage: 500 MG;QD;PO ; 1000 MG;QD;PO
     Route: 048
     Dates: start: 20080321, end: 20080506
  2. KUVAN [Suspect]
     Indication: PHENYLKETONURIA
     Dosage: 500 MG;QD;PO ; 1000 MG;QD;PO
     Route: 048
     Dates: start: 20080507, end: 20080516

REACTIONS (3)
  - DRUG INEFFECTIVE [None]
  - PHARYNGITIS STREPTOCOCCAL [None]
  - VARICELLA [None]
